FAERS Safety Report 20142562 (Version 1)
Quarter: 2021Q4

REPORT INFORMATION
  Report Type: Spontaneous
  Country: US (occurrence: None)
  Receive Date: 20211202
  Receipt Date: 20211202
  Transmission Date: 20220303
  Serious: No
  Sender: FDA-Public Use
  Company Number: US-ROCHE-2924204

PATIENT
  Age: 3 Year
  Sex: Female
  Weight: 14.710 kg

DRUGS (2)
  1. EVRYSDI [Suspect]
     Active Substance: RISDIPLAM
     Indication: Spinal muscular atrophy
     Route: 048
     Dates: start: 20210910
  2. EVRYSDI [Suspect]
     Active Substance: RISDIPLAM
     Dosage: SOLUTION FOR 0.75 MG/ML
     Route: 065
     Dates: start: 20210826

REACTIONS (1)
  - Diarrhoea [Not Recovered/Not Resolved]

NARRATIVE: CASE EVENT DATE: 20210917
